FAERS Safety Report 18240538 (Version 1)
Quarter: 2020Q3

REPORT INFORMATION
  Report Type: Spontaneous
  Country: US (occurrence: US)
  Receive Date: 20200904
  Receipt Date: 20200904
  Transmission Date: 20201103
  Serious: Yes (Hospitalization)
  Sender: FDA-Public Use
  Company Number: None

PATIENT
  Age: 35 Year
  Sex: Female

DRUGS (5)
  1. PROGESTERONE. [Suspect]
     Active Substance: PROGESTERONE
     Indication: INFERTILITY FEMALE
     Dosage: ?          OTHER FREQUENCY:AS DIRECTED;OTHER ROUTE:AS DIRECTED?
     Dates: start: 20180309
  2. ESTRADIOL. [Suspect]
     Active Substance: ESTRADIOL
     Indication: INFERTILITY FEMALE
     Dosage: ?          OTHER FREQUENCY:AS DIRECTED;OTHER ROUTE:AS DIRECTED?
     Dates: start: 20180309
  3. PROMETHEGAN [Concomitant]
     Active Substance: PROMETHAZINE HYDROCHLORIDE
  4. ONDANESTRON [Concomitant]
  5. METOCLOPRAM [Concomitant]
     Active Substance: METOCLOPRAMIDE

REACTIONS (1)
  - Hospitalisation [None]

NARRATIVE: CASE EVENT DATE: 20200903
